APPROVED DRUG PRODUCT: EPANED KIT
Active Ingredient: ENALAPRIL MALEATE
Strength: 1MG/ML **Federal Register determination that product was not discontinued or withdrawn for safety or effectiveness reasons**
Dosage Form/Route: FOR SOLUTION;ORAL
Application: N204308 | Product #001
Applicant: AZURITY PHARMACEUTICALS INC
Approved: Aug 13, 2013 | RLD: Yes | RS: No | Type: DISCN

PATENTS:
Patent 8778366 | Expires: Nov 6, 2032
Patent 8778366 | Expires: Nov 6, 2032
Patent 8778366 | Expires: Nov 6, 2032
Patent 9968553 | Expires: Nov 6, 2032
Patent 9968553 | Expires: Nov 6, 2032
Patent 9968553 | Expires: Nov 6, 2032
Patent 9968553 | Expires: Nov 6, 2032
Patent 9968553 | Expires: Nov 6, 2032
Patent 8778366 | Expires: Nov 6, 2032
Patent 8778366 | Expires: Nov 6, 2032
Patent 8568747 | Expires: Nov 6, 2032
Patent 9855214 | Expires: Nov 6, 2032